FAERS Safety Report 22632719 (Version 1)
Quarter: 2023Q2

REPORT INFORMATION
  Report Type: Other
  Country: IN (occurrence: None)
  Receive Date: 20230623
  Receipt Date: 20230623
  Transmission Date: 20230721
  Serious: Yes (Death)
  Sender: FDA-Public Use
  Company Number: IN-ROCHE-3263489

PATIENT
  Age: 43 Year
  Sex: Female

DRUGS (1)
  1. TECENTRIQ [Suspect]
     Active Substance: ATEZOLIZUMAB
     Indication: Triple negative breast cancer
     Dosage: INTERVAL 24 DAYS?EXPIRY DATE FOR BATCH LOT NUMBER H0344B02- /JUN/2025
     Route: 041
     Dates: start: 20221122

REACTIONS (4)
  - Off label use [Unknown]
  - Platelet count decreased [Unknown]
  - Haemoglobin decreased [Unknown]
  - Neoplasm malignant [Fatal]
